FAERS Safety Report 5267541-9 (Version None)
Quarter: 2007Q1

REPORT INFORMATION
  Report Type: 
  Country: None (occurrence: None)
  Receive Date: 20061213
  Receipt Date: 20031002
  Transmission Date: 20070707
  Serious: No
  Sender: FDA-Public Use
  Company Number: 2003UW08835

PATIENT
  Age: 71 Year
  Sex: Female
  Weight: 70.3075 kg

DRUGS (3)
  1. TAMOXIFEN CITRATE [Suspect]
     Indication: BREAST CANCER
     Dates: start: 19990101, end: 20030501
  2. VITAMIN CAP [Concomitant]
  3. CALCIUM [Concomitant]

REACTIONS (2)
  - ENDOMETRIAL HYPERTROPHY [None]
  - VAGINAL HAEMORRHAGE [None]
